FAERS Safety Report 7930478-8 (Version None)
Quarter: 2011Q4

REPORT INFORMATION
  Report Type: 
  Country: None (occurrence: None)
  Receive Date: 20111121
  Receipt Date: 20111115
  Transmission Date: 20120403
  Serious: Yes (Hospitalization)
  Sender: FDA-Public Use
  Company Number: DE-SANOFI-AVENTIS-2011SA075041

PATIENT
  Age: 73 Year
  Sex: Female
  Weight: 71 kg

DRUGS (13)
  1. MOXONIDINE [Concomitant]
     Route: 048
  2. DILTIAZEM HCL [Concomitant]
     Route: 048
  3. DIGITOXIN TAB [Concomitant]
     Route: 048
  4. GLIMEPIRIDE [Concomitant]
     Route: 048
  5. PHENPROCOUMON [Concomitant]
     Route: 048
  6. TORSEMIDE [Concomitant]
     Route: 048
  7. PANTOPRAZOLE SODIUM [Concomitant]
     Route: 048
  8. HYDROCHLOROTHIAZIDE [Concomitant]
     Route: 048
  9. PRAVASTATIN [Concomitant]
     Route: 048
  10. RAMIPRIL [Concomitant]
     Route: 048
  11. MULTAQ [Suspect]
     Route: 048
     Dates: start: 20111027, end: 20111103
  12. METOPROLOL SUCCINATE [Concomitant]
     Route: 048
  13. AZOPT [Concomitant]
     Route: 065

REACTIONS (2)
  - SUPRAVENTRICULAR TACHYCARDIA [None]
  - ELECTROCARDIOGRAM QT PROLONGED [None]
